FAERS Safety Report 4753206-6 (Version None)
Quarter: 2005Q3

REPORT INFORMATION
  Report Type: 
  Country: None (occurrence: None)
  Receive Date: 20050824
  Receipt Date: 20050810
  Transmission Date: 20060218
  Serious: Yes (Hospitalization)
  Sender: FDA-Public Use
  Company Number: 2005BI008303

PATIENT
  Age: 45 Year
  Sex: Female

DRUGS (6)
  1. AVONEX [Suspect]
     Indication: MULTIPLE SCLEROSIS
     Dosage: IM
     Route: 030
     Dates: start: 20020730
  2. FLONASE [Concomitant]
  3. CLARITIN [Concomitant]
  4. ACIPHEX [Concomitant]
  5. ASPIRIN [Concomitant]
  6. MAXALT [Concomitant]

REACTIONS (2)
  - CHOLECYSTECTOMY [None]
  - TUBAL LIGATION [None]
